FAERS Safety Report 9163861 (Version 3)
Quarter: 2013Q2

REPORT INFORMATION
  Report Type: Spontaneous
  Country: US (occurrence: US)
  Receive Date: 20130314
  Receipt Date: 20130417
  Transmission Date: 20140414
  Serious: No
  Sender: FDA-Public Use
  Company Number: US-BAYER-2013-023038

PATIENT
  Sex: Male

DRUGS (3)
  1. KOGENATE FS [Suspect]
     Indication: HAEMORRHAGE
  2. KOGENATE FS [Suspect]
     Indication: HAEMORRHAGE
  3. KOGENATE FS [Suspect]
     Indication: HAEMORRHAGE

REACTIONS (1)
  - Drug ineffective [None]
